FAERS Safety Report 10441921 (Version 1)
Quarter: 2014Q3

REPORT INFORMATION
  Report Type: Spontaneous
  Country: CA (occurrence: CA)
  Receive Date: 20140909
  Receipt Date: 20140909
  Transmission Date: 20150326
  Serious: Yes (Other)
  Sender: FDA-Public Use
  Company Number: CA-GLAXOSMITHKLINE-A1087556A

PATIENT

DRUGS (1)
  1. AVODART [Suspect]
     Active Substance: DUTASTERIDE
     Indication: PRODUCT USED FOR UNKNOWN INDICATION
     Route: 065

REACTIONS (17)
  - Presyncope [Unknown]
  - Urinary tract obstruction [Unknown]
  - Joint range of motion decreased [Unknown]
  - Functional gastrointestinal disorder [Unknown]
  - Urinary retention [Unknown]
  - Weight decreased [Unknown]
  - Prostatic disorder [Unknown]
  - Biopsy prostate [Unknown]
  - Bladder catheterisation [Unknown]
  - Ileostomy [Unknown]
  - Diverticulitis [Unknown]
  - Prostatomegaly [Unknown]
  - Joint swelling [Unknown]
  - Knee arthroplasty [Unknown]
  - Abdominal operation [Unknown]
  - Hernia repair [Unknown]
  - Weight bearing difficulty [Unknown]
